FAERS Safety Report 9627734 (Version 1)
Quarter: 2013Q4

REPORT INFORMATION
  Report Type: Not Available
  Country: US (occurrence: US)
  Receive Date: 20131016
  Receipt Date: 20131016
  Transmission Date: 20140711
  Serious: No
  Sender: FDA-Public Use
  Company Number: US-LUNDBECK-DKLU1091565

PATIENT
  Age: 62 Year
  Sex: Male

DRUGS (1)
  1. SABRIL (TABLET) [Suspect]
     Indication: NYSTAGMUS
     Route: 048
     Dates: start: 20130527

REACTIONS (1)
  - Malaise [Unknown]
